FAERS Safety Report 4352687-X (Version None)
Quarter: 2004Q2

REPORT INFORMATION
  Report Type: 
  Country: None (occurrence: None)
  Receive Date: 20040430
  Receipt Date: 20040426
  Transmission Date: 20050107
  Serious: Yes (Hospitalization)
  Sender: FDA-Public Use
  Company Number: US-JNJFOC-20040405349

PATIENT
  Age: 15 Year
  Sex: Male
  Weight: 95.2554 kg

DRUGS (3)
  1. CONCERTA [Suspect]
     Indication: ATTENTION DEFICIT/HYPERACTIVITY DISORDER
     Dosage: SEE IMAGE
     Route: 048
     Dates: end: 20040101
  2. CONCERTA [Suspect]
     Indication: ATTENTION DEFICIT/HYPERACTIVITY DISORDER
     Dosage: SEE IMAGE
     Route: 048
     Dates: start: 20040101
  3. ANTIDEPRESSANT (ANTIDEPRESSANTS) [Suspect]
     Indication: DRUG USE FOR UNKNOWN INDICATION

REACTIONS (4)
  - ABNORMAL BEHAVIOUR [None]
  - ALCOHOL POISONING [None]
  - LEGAL PROBLEM [None]
  - PHYSICAL ASSAULT [None]
